APPROVED DRUG PRODUCT: SUPRAX
Active Ingredient: CEFIXIME
Strength: 100MG
Dosage Form/Route: TABLET, CHEWABLE;ORAL
Application: A065380 | Product #001
Applicant: LUPIN LTD
Approved: Oct 25, 2010 | RLD: No | RS: No | Type: DISCN